FAERS Safety Report 9519797 (Version 1)
Quarter: 2013Q1

REPORT INFORMATION
  Report Type: Spontaneous
  Country: US (occurrence: None)
  Receive Date: 20130305
  Receipt Date: 20130305
  Transmission Date: 20140127
  Serious: Yes (Other)
  Sender: FDA-Public Use
  Company Number: 163-21880-12012326

PATIENT
  Age: 65 Year
  Sex: Male
  Weight: 69.4 kg

DRUGS (1)
  1. REVLIMID [Suspect]
     Dosage: 25 MG, DAILY X 21 DAYS, PO
     Route: 048
     Dates: start: 20110711, end: 20120123

REACTIONS (4)
  - Full blood count decreased [None]
  - Weight decreased [None]
  - Platelet count decreased [None]
  - White blood cell count decreased [None]
